FAERS Safety Report 6439614-6 (Version None)
Quarter: 2009Q4

REPORT INFORMATION
  Report Type: 
  Country: None (occurrence: None)
  Receive Date: 20091113
  Receipt Date: 20091109
  Transmission Date: 20100525
  Serious: Yes (Hospitalization)
  Sender: FDA-Public Use
  Company Number: D0063737A

PATIENT
  Age: 74 Year
  Sex: Male
  Weight: 60 kg

DRUGS (2)
  1. LEUKERAN [Suspect]
     Dosage: 50MG EVERY TWO WEEKS
     Route: 048
     Dates: start: 20050901, end: 20060901
  2. MABCAMPATH [Concomitant]
     Dosage: 30MG UNKNOWN
     Route: 058
     Dates: start: 20090301

REACTIONS (2)
  - CHRONIC OBSTRUCTIVE PULMONARY DISEASE [None]
  - PULMONARY FIBROSIS [None]
